FAERS Safety Report 9265562 (Version 7)
Quarter: 2013Q2

REPORT INFORMATION
  Report Type: Report from Study
  Country: ES (occurrence: ES)
  Receive Date: 20130501
  Receipt Date: 20130618
  Transmission Date: 20140414
  Serious: Yes (Hospitalization)
  Sender: FDA-Public Use
  Company Number: ES-ROCHE-1214296

PATIENT
  Age: 63 Year
  Sex: Female
  Weight: 84 kg

DRUGS (9)
  1. TRASTUZUMAB EMTANSINE [Suspect]
     Indication: BREAST CANCER METASTATIC
     Dosage: LAST DOSE PRIOR TO ADVERSE EVENT ON 11/MAR/2013 216MG. TEMPORARILY INTERRUPTED ON 01/APR/2013 AND DI
     Route: 042
     Dates: start: 20130311, end: 20130415
  2. BROMAZEPAM [Concomitant]
     Indication: DEPRESSION
     Route: 065
     Dates: start: 20070226
  3. BROMAZEPAM [Concomitant]
     Route: 065
     Dates: start: 20130415, end: 20130419
  4. DEXKETOPROFEN [Concomitant]
     Indication: PROPHYLAXIS
     Route: 065
     Dates: start: 20121018
  5. SULODEXIDE [Concomitant]
     Indication: PROPHYLAXIS
     Route: 065
     Dates: start: 20121030
  6. CALCIUM CARBONATE/CHOLECALCIFEROL [Concomitant]
     Indication: PROPHYLAXIS
     Route: 065
     Dates: start: 20130103
  7. FUROSEMIDE [Concomitant]
     Indication: PROPHYLAXIS
     Route: 065
     Dates: start: 20130114
  8. PAROXETINE [Concomitant]
     Indication: DEPRESSION
     Route: 065
     Dates: start: 20121018
  9. BUSCAPINA [Concomitant]
     Indication: PROPHYLAXIS
     Route: 065
     Dates: start: 201302

REACTIONS (1)
  - Hepatotoxicity [Not Recovered/Not Resolved]
